FAERS Safety Report 11835810 (Version 1)
Quarter: 2015Q4

REPORT INFORMATION
  Report Type: Spontaneous
  Country: US (occurrence: None)
  Receive Date: 20151214
  Receipt Date: 20151214
  Transmission Date: 20160305
  Serious: Yes (Life-Threatening, Hospitalization)
  Sender: FDA-Public Use
  Company Number: None

PATIENT
  Age: 72 Year
  Sex: Female
  Weight: 88.45 kg

DRUGS (5)
  1. ASPIRIN. [Concomitant]
     Active Substance: ASPIRIN
  2. CELEXA [Concomitant]
     Active Substance: CITALOPRAM HYDROBROMIDE
  3. ATENOLOL. [Concomitant]
     Active Substance: ATENOLOL
  4. LOSARTAN. [Suspect]
     Active Substance: LOSARTAN
     Indication: THERAPY CHANGE
     Route: 048
     Dates: start: 20151207, end: 20151210
  5. GLUCOSAMINE/MSM [Concomitant]

REACTIONS (5)
  - Erythema [None]
  - Angioedema [None]
  - Hypersensitivity [None]
  - Swelling [None]
  - Pruritus [None]

NARRATIVE: CASE EVENT DATE: 20151210
